FAERS Safety Report 8879566 (Version 2)
Quarter: 2012Q4

REPORT INFORMATION
  Report Type: 
  Country: US (occurrence: US)
  Receive Date: 20121101
  Receipt Date: 20121121
  Transmission Date: 20130627
  Serious: Yes (Hospitalization)
  Sender: FDA-Public Use
  Company Number: US-ASTELLAS-2012US010505

PATIENT
  Age: 61 Year
  Sex: Female

DRUGS (5)
  1. PROGRAF [Suspect]
     Indication: PANCREAS TRANSPLANT
     Dosage: 9 mg, UID/QD
     Route: 048
     Dates: start: 2000
  2. CELLCEPT                           /01275102/ [Concomitant]
     Indication: PRODUCT USED FOR UNKNOWN INDICATION
     Dosage: 500 mg, bid
     Route: 065
  3. PREDNISONE [Concomitant]
     Indication: PRODUCT USED FOR UNKNOWN INDICATION
     Dosage: 10 mg, UID/QD
     Route: 065
  4. PANTOPRAZOLE [Concomitant]
     Indication: PRODUCT USED FOR UNKNOWN INDICATION
     Dosage: 40 mg, UID/QD
     Route: 065
  5. IMODIUM [Concomitant]
     Indication: DIARRHOEA
     Dosage: UNK, prn
     Route: 065

REACTIONS (4)
  - Off label use [Unknown]
  - Pancreatic leak [Not Recovered/Not Resolved]
  - Pancreatic injury [Not Recovered/Not Resolved]
  - Infection [Recovered/Resolved]
